FAERS Safety Report 8783281 (Version 1)
Quarter: 2012Q4

REPORT INFORMATION
  Report Type: 
  Country: US (occurrence: US)
  Receive Date: 20120913
  Receipt Date: 20120913
  Transmission Date: 20130627
  Serious: Yes (Hospitalization)
  Sender: FDA-Public Use
  Company Number: US-SANOFI-AVENTIS-2012SA064656

PATIENT
  Sex: Female

DRUGS (2)
  1. GLYBURIDE [Suspect]
     Route: 048
  2. METFORMIN [Suspect]
     Route: 065

REACTIONS (2)
  - Gallbladder operation [Unknown]
  - Blood glucose increased [Unknown]
